FAERS Safety Report 17062795 (Version 2)
Quarter: 2019Q4

REPORT INFORMATION
  Report Type: Spontaneous
  Country: CU (occurrence: CU)
  Receive Date: 20191122
  Receipt Date: 20191224
  Transmission Date: 20200122
  Serious: Yes (Other)
  Sender: FDA-Public Use
  Company Number: CU-ROCHE-2478757

PATIENT
  Age: 17 Year
  Sex: Male
  Weight: 64 kg

DRUGS (2)
  1. HEMLIBRA [Suspect]
     Active Substance: EMICIZUMAB-KXWH
     Route: 058
     Dates: start: 20191201, end: 20191213
  2. HEMLIBRA [Suspect]
     Active Substance: EMICIZUMAB-KXWH
     Indication: PROPHYLAXIS
     Route: 058
     Dates: start: 20191017, end: 20191024

REACTIONS (4)
  - Dengue fever [Recovered/Resolved]
  - Hepatosplenomegaly [Unknown]
  - Polyserositis [Recovered/Resolved]
  - Dengue haemorrhagic fever [Recovered/Resolved]

NARRATIVE: CASE EVENT DATE: 20191017
